FAERS Safety Report 10237256 (Version 1)
Quarter: 2014Q2

REPORT INFORMATION
  Report Type: Spontaneous
  Country: US (occurrence: US)
  Receive Date: 20140613
  Receipt Date: 20140613
  Transmission Date: 20141212
  Serious: No
  Sender: FDA-Public Use
  Company Number: US-009507513-1405USA015533

PATIENT
  Age: 72 Year
  Sex: Male

DRUGS (2)
  1. PROVENTIL [Suspect]
     Indication: CHRONIC OBSTRUCTIVE PULMONARY DISEASE
     Dosage: UNK
     Route: 055
     Dates: start: 20140325
  2. OXYGEN [Concomitant]
     Indication: OXYGEN SUPPLEMENTATION
     Dosage: VIA A NASAL CANNULA AT 4L/MIN
     Route: 045

REACTIONS (1)
  - Heart rate increased [Unknown]
